FAERS Safety Report 16085651 (Version 1)
Quarter: 2019Q1

REPORT INFORMATION
  Report Type: Spontaneous
  Country: US (occurrence: US)
  Receive Date: 20190318
  Receipt Date: 20190318
  Transmission Date: 20190418
  Serious: No
  Sender: FDA-Public Use
  Company Number: US-GLAXOSMITHKLINE-US2019047150

PATIENT

DRUGS (1)
  1. FLOLAN [Suspect]
     Active Substance: EPOPROSTENOL SODIUM
     Indication: LUNG DISORDER
     Dosage: UNK UNK, U
     Route: 055

REACTIONS (3)
  - Product use in unapproved indication [Unknown]
  - Incorrect route of product administration [Unknown]
  - Off label use [Unknown]
